FAERS Safety Report 26095898 (Version 3)
Quarter: 2025Q4

REPORT INFORMATION
  Report Type: Spontaneous
  Country: US (occurrence: US)
  Receive Date: 20251127
  Receipt Date: 20251226
  Transmission Date: 20260117
  Serious: No
  Sender: LUPIN
  Company Number: US-LUPIN PHARMACEUTICALS INC.-2025-10501

PATIENT
  Age: 67 Year

DRUGS (2)
  1. BUDESONIDE [Suspect]
     Active Substance: BUDESONIDE
     Indication: Wheezing
     Dosage: UNK, QD
     Route: 065
  2. BUDESONIDE [Suspect]
     Active Substance: BUDESONIDE
     Indication: Respiratory tract congestion

REACTIONS (5)
  - Anxiety [Unknown]
  - Insomnia [Unknown]
  - Nervousness [Unknown]
  - Drug ineffective for unapproved indication [Unknown]
  - Off label use [Unknown]
